FAERS Safety Report 25636858 (Version 1)
Quarter: 2025Q3

REPORT INFORMATION
  Report Type: Spontaneous
  Country: US (occurrence: US)
  Receive Date: 20250804
  Receipt Date: 20250804
  Transmission Date: 20251020
  Serious: No
  Sender: AILEX PHARMACEUTICALS LLC
  Company Number: US-AP-2025-6722

PATIENT
  Sex: Female

DRUGS (1)
  1. CROMOLYN SODIUM [Suspect]
     Active Substance: CROMOLYN SODIUM

REACTIONS (2)
  - Product availability issue [Unknown]
  - Intentional underdose [Unknown]
